FAERS Safety Report 9303387 (Version 1)
Quarter: 2013Q2

REPORT INFORMATION
  Report Type: Spontaneous
  Country: US (occurrence: None)
  Receive Date: 20130521
  Receipt Date: 20130521
  Transmission Date: 20140414
  Serious: Yes (Life-Threatening)
  Sender: FDA-Public Use
  Company Number: None

PATIENT
  Sex: Female
  Weight: 106.6 kg

DRUGS (1)
  1. CARVEDILOL [Suspect]
     Dosage: TABLET TWICE A DAY

REACTIONS (6)
  - Dizziness [None]
  - Fatigue [None]
  - Dizziness [None]
  - Dyspnoea [None]
  - Heart rate increased [None]
  - Pollakiuria [None]
